FAERS Safety Report 12081568 (Version 3)
Quarter: 2016Q1

REPORT INFORMATION
  Report Type: Spontaneous
  Country: FR (occurrence: FR)
  Receive Date: 20160216
  Receipt Date: 20160303
  Transmission Date: 20160526
  Serious: Yes (Life-Threatening)
  Sender: FDA-Public Use
  Company Number: FR-PFIZER INC-2016083347

PATIENT
  Age: 82 Year
  Sex: Female

DRUGS (18)
  1. PARIET [Concomitant]
     Active Substance: RABEPRAZOLE SODIUM
     Dosage: 20 MG, 1X/DAY
     Route: 048
     Dates: start: 20151123, end: 20151209
  2. PRIMPERAN [Concomitant]
     Active Substance: METOCLOPRAMIDE HYDROCHLORIDE
     Indication: NAUSEA
     Dosage: 10 MG, 3X/DAY
     Route: 048
     Dates: start: 20151127, end: 20151209
  3. VIDAZA [Concomitant]
     Active Substance: AZACITIDINE
     Dosage: THE 5TH COURSE, NO STOP DATE
     Dates: start: 20151026
  4. ARANESP [Concomitant]
     Active Substance: DARBEPOETIN ALFA
     Dosage: 30 UG, WEEKLY
     Route: 058
     Dates: start: 20151123, end: 20151202
  5. FORTUM /00559701/ [Concomitant]
     Active Substance: CEFTAZIDIME
     Indication: ANTIBIOTIC THERAPY
     Dosage: UNK
     Dates: start: 20151123, end: 20151130
  6. ROCEPHINE [Concomitant]
     Active Substance: CEFTRIAXONE SODIUM
     Dosage: UNK
     Dates: start: 20151130, end: 20151207
  7. VENTOLINE /00139501/ [Concomitant]
     Active Substance: ALBUTEROL
     Dosage: 1 DF, 3X/DAY
     Route: 055
     Dates: start: 20151204, end: 20151209
  8. CORDARONE [Interacting]
     Active Substance: AMIODARONE HYDROCHLORIDE
     Dosage: 200 MG, 1X/DAY
     Route: 048
     Dates: start: 20151123, end: 20151209
  9. VANCOMYCIN [Concomitant]
     Active Substance: VANCOMYCIN
     Dosage: 1250 MG, 2X/DAY
     Route: 042
     Dates: start: 20151204
  10. EUPANTOL [Concomitant]
     Active Substance: PANTOPRAZOLE SODIUM
     Dosage: 20 MG, DAILY
     Dates: end: 20151122
  11. DAFALGAN [Concomitant]
     Active Substance: ACETAMINOPHEN
     Indication: PAIN
     Dosage: 500 MG, AS NEEDED
     Route: 048
     Dates: start: 20151123
  12. VFEND [Suspect]
     Active Substance: VORICONAZOLE
     Dosage: 200 MG, DAILY
     Route: 048
     Dates: start: 20151207, end: 20151207
  13. VFEND [Interacting]
     Active Substance: VORICONAZOLE
     Dosage: 400 MG, 2X/DAY
     Route: 048
     Dates: start: 20151208, end: 20151209
  14. TIENAM [Concomitant]
     Active Substance: CILASTATIN SODIUM\IMIPENEM
     Dosage: 1 DF, 4X/DAY
     Route: 042
     Dates: start: 20151207, end: 20151209
  15. ZOPICLONE [Concomitant]
     Active Substance: ZOPICLONE
     Dosage: 3.75 OR 7.5 MG ONCE DAILY
     Route: 048
     Dates: start: 2015
  16. DIFFU K [Concomitant]
     Active Substance: POTASSIUM CHLORIDE
     Indication: HYPOKALAEMIA
     Dosage: 1200 MG, 3X/DAY
     Route: 048
     Dates: start: 20151130
  17. IPRATROPIUM BROMIDE. [Concomitant]
     Active Substance: IPRATROPIUM BROMIDE
     Dosage: 1 DF, 3X/DAY
     Route: 055
     Dates: start: 20151204
  18. FLAGYL [Concomitant]
     Active Substance: METRONIDAZOLE\METRONIDAZOLE HYDROCHLORIDE
     Indication: ANTIBIOTIC THERAPY
     Dosage: UNK
     Dates: start: 20151123, end: 20151130

REACTIONS (2)
  - Drug interaction [Recovered/Resolved]
  - Torsade de pointes [Recovered/Resolved]

NARRATIVE: CASE EVENT DATE: 20151209
